FAERS Safety Report 7619403-7 (Version None)
Quarter: 2011Q3

REPORT INFORMATION
  Report Type: 
  Country: None (occurrence: None)
  Receive Date: 20110719
  Receipt Date: 20110711
  Transmission Date: 20111222
  Serious: Yes (Other)
  Sender: FDA-Public Use
  Company Number: SE-AMGEN-SWESP2011035500

PATIENT
  Age: 56 Year
  Sex: Female

DRUGS (7)
  1. SIMVASTATIN [Concomitant]
     Dosage: UNK
  2. BEHEPAN [Concomitant]
     Dosage: UNK
  3. PREDNISOLONE [Concomitant]
     Dosage: UNK
  4. CALCICHEW-D3 [Concomitant]
     Dosage: UNK
  5. FOLACIN                            /00198401/ [Concomitant]
     Dosage: UNK
  6. ENBREL [Suspect]
     Indication: RHEUMATOID ARTHRITIS
     Dosage: 50 MG, WEEKLY
     Dates: start: 20060101, end: 20090101
  7. METHOTREXATE [Concomitant]
     Dosage: UNK

REACTIONS (2)
  - DRUG INEFFECTIVE [None]
  - POLYNEUROPATHY [None]
